FAERS Safety Report 9134344 (Version 1)
Quarter: 2013Q1

REPORT INFORMATION
  Report Type: Spontaneous
  Country: US (occurrence: US)
  Receive Date: 20130304
  Receipt Date: 20130304
  Transmission Date: 20140127
  Serious: Yes (Other)
  Sender: FDA-Public Use
  Company Number: US-TARO-2013P1002614

PATIENT
  Age: 55 Year
  Sex: Female

DRUGS (1)
  1. BETAMETHASONE VALERATE [Suspect]
     Indication: RASH
     Route: 061
     Dates: start: 20130221, end: 20130221

REACTIONS (3)
  - Hypersensitivity [Recovering/Resolving]
  - Asthma [Recovering/Resolving]
  - Cough [None]
